FAERS Safety Report 7603536-5 (Version None)
Quarter: 2011Q3

REPORT INFORMATION
  Report Type: 
  Country: None (occurrence: None)
  Receive Date: 20110701
  Receipt Date: 20110616
  Transmission Date: 20111222
  Serious: Yes (Other)
  Sender: FDA-Public Use
  Company Number: AUR-APL-2011-03573

PATIENT
  Age: 87 Year
  Sex: Female

DRUGS (10)
  1. ASPIRIN [Concomitant]
  2. TERBINAFINE HCL [Suspect]
     Indication: INTERTRIGO CANDIDA
     Dosage: 250 MG (250 MG,1 IN 1 D),ORAL
     Route: 048
  3. CANDESARTAN CILEXETIL [Concomitant]
  4. WARFARIN SODIUM [Concomitant]
  5. LOPERAMIDE [Concomitant]
  6. CALCIUM (CALCIUM) [Concomitant]
  7. BISOPROLOL FUMARATE [Concomitant]
  8. FUROSEMIDE [Concomitant]
  9. OMEPRAZOLE [Concomitant]
  10. ALENDRONATE SODIUM [Concomitant]

REACTIONS (1)
  - ACUTE GENERALISED EXANTHEMATOUS PUSTULOSIS [None]
